FAERS Safety Report 8901868 (Version 1)
Quarter: 2012Q4

REPORT INFORMATION
  Report Type: Spontaneous
  Country: US (occurrence: None)
  Receive Date: 20121109
  Receipt Date: 20121109
  Transmission Date: 20130627
  Serious: No
  Sender: FDA-Public Use
  Company Number: None

PATIENT
  Age: 57 Year
  Sex: Female

DRUGS (1)
  1. PEGASYS [Suspect]
     Dosage: 180 mcg once weekly subq
     Dates: start: 20121104

REACTIONS (1)
  - Diarrhoea [None]
